FAERS Safety Report 7535814-2 (Version None)
Quarter: 2011Q2

REPORT INFORMATION
  Report Type: 
  Country: None (occurrence: None)
  Receive Date: 20110602
  Receipt Date: 20110521
  Transmission Date: 20111010
  Serious: Yes (Hospitalization)
  Sender: FDA-Public Use
  Company Number: 2011AP001050

PATIENT
  Age: 46 Year
  Sex: Female

DRUGS (1)
  1. LITHIUM CARBONATE [Suspect]
     Indication: BIPOLAR DISORDER

REACTIONS (8)
  - ASTHENIA [None]
  - DIARRHOEA [None]
  - PULMONARY OEDEMA [None]
  - TOXICITY TO VARIOUS AGENTS [None]
  - BLOOD PRESSURE DIASTOLIC DECREASED [None]
  - ACUTE RESPIRATORY DISTRESS SYNDROME [None]
  - BLOOD SODIUM DECREASED [None]
  - DIALYSIS [None]
